FAERS Safety Report 7465431-4 (Version None)
Quarter: 2011Q2

REPORT INFORMATION
  Report Type: 
  Country: None (occurrence: None)
  Receive Date: 20110509
  Receipt Date: 20110502
  Transmission Date: 20111010
  Serious: Yes (Hospitalization, Other)
  Sender: FDA-Public Use
  Company Number: US-ROCHE-702213

PATIENT
  Sex: Male
  Weight: 79.4 kg

DRUGS (9)
  1. CODEINE SULFATE [Concomitant]
  2. MINOCIN [Concomitant]
     Route: 048
     Dates: start: 19971111
  3. ACETAMINOPHEN [Concomitant]
  4. MONODOX [Concomitant]
  5. ACCUTANE [Suspect]
     Dosage: ON HOLD
     Route: 048
     Dates: start: 19980119, end: 19980506
  6. ACCUTANE [Suspect]
     Route: 048
     Dates: start: 19980601
  7. ACCUTANE [Suspect]
     Route: 048
     Dates: start: 20000131, end: 20010601
  8. ACCUTANE [Suspect]
     Route: 048
     Dates: start: 19980820, end: 19981212
  9. TRIAMCINOLONE [Concomitant]

REACTIONS (8)
  - INTESTINAL HAEMORRHAGE [None]
  - GASTROINTESTINAL INJURY [None]
  - COLITIS ULCERATIVE [None]
  - TRAUMATIC BRAIN INJURY [None]
  - INFLAMMATORY BOWEL DISEASE [None]
  - ARTHRALGIA [None]
  - BLOOD TRIGLYCERIDES INCREASED [None]
  - LIP DRY [None]
